FAERS Safety Report 21258065 (Version 1)
Quarter: 2022Q3

REPORT INFORMATION
  Report Type: Spontaneous
  Country: DE (occurrence: DE)
  Receive Date: 20220826
  Receipt Date: 20220826
  Transmission Date: 20221027
  Serious: Yes (Other)
  Sender: FDA-Public Use
  Company Number: DE-SUN PHARMACEUTICAL INDUSTRIES LTD-2022R1-352430

PATIENT
  Age: 56 Year

DRUGS (2)
  1. LITHIUM [Suspect]
     Active Substance: LITHIUM
     Indication: Depression
     Dosage: UNK
     Route: 065
  2. ESKETAMINE [Concomitant]
     Active Substance: ESKETAMINE
     Indication: Depression
     Dosage: UNK,1 MG/KG
     Route: 065

REACTIONS (1)
  - Disorientation [Recovered/Resolved]
